FAERS Safety Report 5335316-8 (Version None)
Quarter: 2007Q2

REPORT INFORMATION
  Report Type: 
  Country: None (occurrence: None)
  Receive Date: 20070525
  Receipt Date: 20070514
  Transmission Date: 20071010
  Serious: Yes (Other)
  Sender: FDA-Public Use
  Company Number: US-PFIZER INC-2007038816

PATIENT
  Sex: Female
  Weight: 59.09 kg

DRUGS (9)
  1. CELEBREX [Suspect]
     Indication: RHEUMATOID ARTHRITIS
     Dates: start: 20050101, end: 20050901
  2. CHANTIX [Suspect]
     Indication: EX-SMOKER
     Dates: start: 20070508, end: 20070514
  3. METOPROLOL SUCCINATE [Suspect]
     Dates: start: 20060101, end: 20060101
  4. VYTORIN [Concomitant]
  5. MAVIK [Concomitant]
  6. PLAVIX [Concomitant]
  7. ACETYLSALICYLIC ACID SRT [Concomitant]
  8. DILTIAZEM [Concomitant]
  9. PREDNISONE TAB [Concomitant]

REACTIONS (3)
  - ANAPHYLACTIC SHOCK [None]
  - DRUG INEFFECTIVE [None]
  - RASH [None]
